FAERS Safety Report 7213504-3 (Version None)
Quarter: 2011Q1

REPORT INFORMATION
  Report Type: 
  Country: None (occurrence: None)
  Receive Date: 20110106
  Receipt Date: 20110105
  Transmission Date: 20110831
  Serious: Yes (Death)
  Sender: FDA-Public Use
  Company Number: DE-ABBOTT-10P-062-0684224-00

PATIENT
  Sex: Male
  Weight: 73 kg

DRUGS (2)
  1. KALETRA [Suspect]
     Indication: IMMUNE SYSTEM DISORDER
  2. TRUVADA [Concomitant]
     Indication: IMMUNE SYSTEM DISORDER
     Dosage: OPD
     Route: 048

REACTIONS (1)
  - COMPLETED SUICIDE [None]
